FAERS Safety Report 6310674-6 (Version None)
Quarter: 2009Q3

REPORT INFORMATION
  Report Type: 
  Country: None (occurrence: None)
  Receive Date: 20090810
  Receipt Date: 20090731
  Transmission Date: 20100115
  Serious: Yes (Death, Hospitalization)
  Sender: FDA-Public Use
  Company Number: 2009SP015731

PATIENT
  Age: 91 Year
  Sex: Female

DRUGS (6)
  1. TEMODAL [Suspect]
     Indication: MALIGNANT MELANOMA
     Dosage: 100 MG;QD; 250 MG;QD
     Dates: end: 20080910
  2. TEMODAL [Suspect]
     Indication: MALIGNANT MELANOMA
     Dosage: 100 MG;QD; 250 MG;QD
     Dates: start: 20080730
  3. KARVEZIDE [Concomitant]
  4. BISOPROLOL FUMARATE [Concomitant]
  5. ZOFRAN [Concomitant]
  6. CALCIGEN D [Concomitant]

REACTIONS (10)
  - CEREBRAL HAEMORRHAGE [None]
  - ESCHERICHIA SEPSIS [None]
  - FEBRILE NEUTROPENIA [None]
  - KLEBSIELLA INFECTION [None]
  - MALIGNANT NEOPLASM PROGRESSION [None]
  - METASTATIC MALIGNANT MELANOMA [None]
  - OVERDOSE [None]
  - PANCYTOPENIA [None]
  - SOMNOLENCE [None]
  - URINARY TRACT INFECTION BACTERIAL [None]
